FAERS Safety Report 23497630 (Version 1)
Quarter: 2024Q1

REPORT INFORMATION
  Report Type: Spontaneous
  Country: US (occurrence: None)
  Receive Date: 20240207
  Receipt Date: 20240207
  Transmission Date: 20240410
  Serious: No
  Sender: FDA-Public Use
  Company Number: US-ROCHE-3311548

PATIENT
  Sex: Female

DRUGS (2)
  1. XOLAIR [Suspect]
     Active Substance: OMALIZUMAB
     Indication: Product used for unknown indication
     Route: 065
  2. DUPIXENT [Suspect]
     Active Substance: DUPILUMAB
     Indication: Eosinophilic oesophagitis
     Dosage: 300 MG/2 MSL
     Route: 058
     Dates: start: 20211127

REACTIONS (5)
  - Idiopathic urticaria [Unknown]
  - Irritable bowel syndrome [Unknown]
  - Hypovitaminosis [Unknown]
  - Eosinophilic oesophagitis [Unknown]
  - Dysphagia [Unknown]
